FAERS Safety Report 8841017 (Version 2)
Quarter: 2015Q3

REPORT INFORMATION
  Report Type: Report from Study
  Country: US (occurrence: US)
  Receive Date: 20121015
  Receipt Date: 20150814
  Transmission Date: 20151125
  Serious: Yes (Hospitalization)
  Sender: FDA-Public Use
  Company Number: US-ROCHE-1127220

PATIENT
  Age: 12 Year
  Sex: Male

DRUGS (6)
  1. VERAPAMIL [Concomitant]
     Active Substance: VERAPAMIL HYDROCHLORIDE
     Route: 065
  2. POLYCITRA-K [Concomitant]
     Dosage: 15 CC
     Route: 065
  3. NUTROPIN AQ [Suspect]
     Active Substance: SOMATROPIN
     Indication: FAILURE TO THRIVE
     Route: 065
     Dates: start: 200008
  4. PREDNISONE. [Concomitant]
     Active Substance: PREDNISONE
     Dosage: EVERY OTHER DAY
     Route: 065
  5. FK 506 [Concomitant]
     Active Substance: TACROLIMUS
     Route: 065
  6. MAGNESIUM OXIDE. [Concomitant]
     Active Substance: MAGNESIUM OXIDE
     Route: 065

REACTIONS (1)
  - Pneumonia bacterial [Recovered/Resolved]

NARRATIVE: CASE EVENT DATE: 200009
